FAERS Safety Report 24995197 (Version 1)
Quarter: 2025Q1

REPORT INFORMATION
  Report Type: Spontaneous
  Country: US (occurrence: None)
  Receive Date: 20250219
  Receipt Date: 20250219
  Transmission Date: 20250409
  Serious: Yes (Hospitalization)
  Sender: FDA-CTU
  Company Number: None

PATIENT
  Age: 24 Year
  Sex: Female
  Weight: 60.75 kg

DRUGS (1)
  1. STEM CELL EXOSOME GROWTH FACTOR DERIVED OTC PRODUCTS [Suspect]
     Active Substance: STEM CELL EXOSOME GROWTH FACTOR DERIVED OTC PRODUCTS
     Indication: Product used for unknown indication
     Dates: start: 20241113, end: 20241114

REACTIONS (4)
  - Application site erythema [None]
  - Application site swelling [None]
  - Application site pain [None]
  - Application site pustules [None]

NARRATIVE: CASE EVENT DATE: 20241113
